FAERS Safety Report 15102714 (Version 7)
Quarter: 2019Q4

REPORT INFORMATION
  Report Type: Spontaneous
  Country: US (occurrence: US)
  Receive Date: 20180703
  Receipt Date: 20191204
  Transmission Date: 20200122
  Serious: No
  Sender: FDA-Public Use
  Company Number: US-SA-2018SA178066

PATIENT
  Age: 63 Year
  Sex: Male

DRUGS (21)
  1. DUPIXENT [Suspect]
     Active Substance: DUPILUMAB
     Dosage: 300 MG
     Route: 058
     Dates: start: 201810
  2. HYDROCHLOROTH [Concomitant]
     Active Substance: HYDROCHLOROTHIAZIDE
  3. ALCLOMETASONE [Concomitant]
     Active Substance: ALCLOMETASONE
  4. PREDNISONE. [Concomitant]
     Active Substance: PREDNISONE
  5. CLOBETASOL [Concomitant]
     Active Substance: CLOBETASOL
  6. FLUTICASONE. [Concomitant]
     Active Substance: FLUTICASONE
  7. LISINOPRIL. [Concomitant]
     Active Substance: LISINOPRIL
  8. METHOTREXATE. [Concomitant]
     Active Substance: METHOTREXATE
  9. DULOXETINE. [Concomitant]
     Active Substance: DULOXETINE
  10. ADDERALL [Concomitant]
     Active Substance: AMPHETAMINE ASPARTATE\AMPHETAMINE SULFATE\DEXTROAMPHETAMINE SACCHARATE\DEXTROAMPHETAMINE SULFATE
  11. MUPIROCIN. [Concomitant]
     Active Substance: MUPIROCIN
  12. DUPIXENT [Suspect]
     Active Substance: DUPILUMAB
     Indication: DERMATITIS ATOPIC
     Dosage: 300 MG, QOW
     Route: 058
     Dates: start: 20170622
  13. CYMBALTA [Concomitant]
     Active Substance: DULOXETINE HYDROCHLORIDE
  14. MONTELUKAST [Concomitant]
     Active Substance: MONTELUKAST SODIUM
  15. DUPIXENT [Suspect]
     Active Substance: DUPILUMAB
     Dosage: 300 MG, OTHER
     Route: 058
     Dates: start: 201902
  16. FEXOFENADINE [Concomitant]
     Active Substance: FEXOFENADINE HYDROCHLORIDE
  17. PROAIR HFA [Concomitant]
     Active Substance: ALBUTEROL SULFATE
  18. DULERA [Concomitant]
     Active Substance: FORMOTEROL FUMARATE DIHYDRATE\MOMETASONE FUROATE
  19. DICLOFENAC [Concomitant]
     Active Substance: DICLOFENAC
  20. FOLIC ACID. [Concomitant]
     Active Substance: FOLIC ACID
  21. EPIPEN [Concomitant]
     Active Substance: EPINEPHRINE

REACTIONS (7)
  - Eyelid skin dryness [Not Recovered/Not Resolved]
  - Eczema [Not Recovered/Not Resolved]
  - Eyelids pruritus [Not Recovered/Not Resolved]
  - Rash [Unknown]
  - Dermatitis atopic [Unknown]
  - Product dose omission [Unknown]
  - Drug ineffective [Unknown]

NARRATIVE: CASE EVENT DATE: 20170701
